FAERS Safety Report 10078323 (Version 2)
Quarter: 2014Q2

REPORT INFORMATION
  Report Type: Spontaneous
  Country: US (occurrence: US)
  Receive Date: 20140415
  Receipt Date: 20140501
  Transmission Date: 20141212
  Serious: No
  Sender: FDA-Public Use
  Company Number: US-009507513-1404USA004329

PATIENT
  Age: 75 Year
  Sex: Female

DRUGS (2)
  1. ASMANEX TWISTHALER [Suspect]
     Indication: BRONCHITIS
     Dosage: 1 DF, QD; ONE PUFF ONCE A DAY ORAL INHALATION
     Route: 055
     Dates: start: 20140122
  2. ASMANEX TWISTHALER [Suspect]
     Indication: OFF LABEL USE

REACTIONS (4)
  - Cough [Not Recovered/Not Resolved]
  - Incorrect dose administered [Unknown]
  - Product quality issue [Unknown]
  - Off label use [Unknown]
